FAERS Safety Report 4619271-1 (Version None)
Quarter: 2005Q2

REPORT INFORMATION
  Report Type: 
  Country: None (occurrence: None)
  Receive Date: 20050321
  Receipt Date: 20040122
  Transmission Date: 20051028
  Serious: Yes (Other)
  Sender: FDA-Public Use
  Company Number: 2004-01-1677

PATIENT
  Age: 28 Year
  Sex: Female

DRUGS (2)
  1. PEG-INTRON [Suspect]
     Dosage: 120 MCG VIAL, SUBCUTANEOUS
     Route: 058
     Dates: start: 20040108
  2. REBETOL [Suspect]
     Dosage: 1000 MG QD ORAL
     Route: 048
     Dates: start: 20040108

REACTIONS (2)
  - ABORTION SPONTANEOUS [None]
  - DRUG EXPOSURE DURING PREGNANCY [None]
